FAERS Safety Report 25798649 (Version 1)
Quarter: 2025Q3

REPORT INFORMATION
  Report Type: Spontaneous
  Country: GB (occurrence: GB)
  Receive Date: 20250913
  Receipt Date: 20250913
  Transmission Date: 20251020
  Serious: Yes (Hospitalization, Other)
  Sender: ACCORD
  Company Number: None

PATIENT
  Age: 86 Year
  Sex: Female

DRUGS (22)
  1. FUROSEMIDE [Suspect]
     Active Substance: FUROSEMIDE
     Indication: Product used for unknown indication
  2. BUMETANIDE [Suspect]
     Active Substance: BUMETANIDE
     Indication: Product used for unknown indication
     Dosage: STRENGTH: 1 MG, ONE TO BE TAKEN TWICE A DAY
  3. RAMIPRIL [Concomitant]
     Active Substance: RAMIPRIL
  4. HYPROMELLOSES [Concomitant]
     Active Substance: HYPROMELLOSES
  5. FOLIC ACID [Concomitant]
     Active Substance: FOLIC ACID
  6. ISOSORBIDE MONONITRATE [Concomitant]
     Active Substance: ISOSORBIDE MONONITRATE
  7. POLYETHYLENE GLYCOL 3350\POTASSIUM CHLORIDE\SODIUM BICARBONATE\SODIUM [Concomitant]
     Active Substance: POLYETHYLENE GLYCOL 3350\POTASSIUM CHLORIDE\SODIUM BICARBONATE\SODIUM CHLORIDE
  8. ACETAMINOPHEN [Concomitant]
     Active Substance: ACETAMINOPHEN
  9. LANSOPRAZOLE [Concomitant]
     Active Substance: LANSOPRAZOLE
  10. IBUPROFEN [Concomitant]
     Active Substance: IBUPROFEN
  11. PEPPERMINT OIL [Concomitant]
     Active Substance: PEPPERMINT OIL
  12. SENNA [Concomitant]
     Active Substance: SENNOSIDES
  13. MIRTAZAPINE [Concomitant]
     Active Substance: MIRTAZAPINE
  14. ESTRADIOL [Concomitant]
     Active Substance: ESTRADIOL
  15. CALCIUM CARBONATE\CHOLECALCIFEROL [Concomitant]
     Active Substance: CALCIUM CARBONATE\CHOLECALCIFEROL
  16. BISOPROLOL [Concomitant]
     Active Substance: BISOPROLOL
  17. APIXABAN [Concomitant]
     Active Substance: APIXABAN
  18. Hylo-Tear [Concomitant]
  19. NITROFURANTOIN [Concomitant]
     Active Substance: NITROFURANTOIN
  20. CEPHALEXIN [Concomitant]
     Active Substance: CEPHALEXIN
  21. FERROUS FUMARATE [Concomitant]
     Active Substance: FERROUS FUMARATE
  22. NITROGLYCERIN [Concomitant]
     Active Substance: NITROGLYCERIN

REACTIONS (1)
  - Gout [Unknown]
